FAERS Safety Report 7391791-9 (Version None)
Quarter: 2011Q2

REPORT INFORMATION
  Report Type: 
  Country: None (occurrence: None)
  Receive Date: 20110404
  Receipt Date: 20110330
  Transmission Date: 20111010
  Serious: Yes (Hospitalization)
  Sender: FDA-Public Use
  Company Number: BR-ROCHE-764619

PATIENT
  Sex: Female
  Weight: 51 kg

DRUGS (2)
  1. ROACCUTAN [Suspect]
     Indication: ACNE
     Route: 048
  2. ROACCUTAN [Suspect]
     Dosage: DOSE:20 MG/CAP, FREQUENCY:1 CAPSULE AFTER LUNCH
     Route: 048
     Dates: start: 20110101, end: 20110218

REACTIONS (2)
  - MALAISE [None]
  - BRONCHITIS [None]
